APPROVED DRUG PRODUCT: SOLIFENACIN SUCCINATE
Active Ingredient: SOLIFENACIN SUCCINATE
Strength: 10MG
Dosage Form/Route: TABLET;ORAL
Application: A205484 | Product #002 | TE Code: AB
Applicant: JUBILANT GENERICS LTD
Approved: Oct 2, 2024 | RLD: No | RS: No | Type: RX